FAERS Safety Report 6705409-9 (Version None)
Quarter: 2010Q2

REPORT INFORMATION
  Report Type: 
  Country: None (occurrence: None)
  Receive Date: 20100503
  Receipt Date: 20100422
  Transmission Date: 20101027
  Serious: Yes (Hospitalization, Other)
  Sender: FDA-Public Use
  Company Number: US-BIOGENIDEC-2010BI013464

PATIENT
  Age: 28 Year
  Sex: Female
  Weight: 90 kg

DRUGS (1)
  1. AVONEX [Suspect]
     Indication: MULTIPLE SCLEROSIS
     Route: 030
     Dates: start: 20050609

REACTIONS (8)
  - AORTIC ANEURYSM [None]
  - BLOOD PRESSURE INCREASED [None]
  - CARDIAC VALVE RUPTURE [None]
  - CARDIOMEGALY [None]
  - CHEST PAIN [None]
  - HEART VALVE INCOMPETENCE [None]
  - HYPERVENTILATION [None]
  - VOLUME BLOOD DECREASED [None]
